FAERS Safety Report 10441418 (Version 1)
Quarter: 2014Q3

REPORT INFORMATION
  Report Type: Spontaneous
  Country: US (occurrence: None)
  Receive Date: 20140905
  Receipt Date: 20140905
  Transmission Date: 20150326
  Serious: Yes (Other)
  Sender: FDA-Public Use
  Company Number: 2010S1000521C

PATIENT
  Age: 41 Year
  Sex: Female

DRUGS (6)
  1. FLEET BISACODYL ENEMA, RECTAL SOLUTION [Suspect]
     Active Substance: BISACODYL\GLYCERIN\MINERAL OIL\SODIUM PHOSPHATE, DIBASIC\SODIUM PHOSPHATE, MONOBASIC
     Indication: BARIUM DOUBLE CONTRAST
     Route: 054
     Dates: start: 20071122
  2. FLEET STIMULANT LAXATIVE TABLET,BISACODYL [Suspect]
     Active Substance: BISACODYL\GLYCERIN\MINERAL OIL\SODIUM PHOSPHATE, DIBASIC\SODIUM PHOSPHATE, MONOBASIC
     Indication: BARIUM DOUBLE CONTRAST
     Route: 048
     Dates: start: 20071122
  3. LISINOPRIL. [Concomitant]
     Active Substance: LISINOPRIL
  4. INSULIN [Concomitant]
     Active Substance: INSULIN NOS
  5. PHOSPHO-SODA [Suspect]
     Active Substance: SODIUM PHOSPHATE, DIBASIC\SODIUM PHOSPHATE, MONOBASIC
     Indication: BARIUM DOUBLE CONTRAST
     Route: 048
     Dates: start: 20071122
  6. PERCOCET (PARACETAMOL, OXYCODONE HYDROCHLORIDE, OXYCODONE TEREPHTHALATE) [Concomitant]

REACTIONS (8)
  - Hyperphosphataemia [None]
  - Hypercholesterolaemia [None]
  - Headache [None]
  - Blood parathyroid hormone increased [None]
  - Renal failure chronic [None]
  - Haemodialysis [None]
  - Dizziness [None]
  - Nephrogenic anaemia [None]

NARRATIVE: CASE EVENT DATE: 20081106
